FAERS Safety Report 18208238 (Version 2)
Quarter: 2020Q3

REPORT INFORMATION
  Report Type: Spontaneous
  Country: FR (occurrence: FR)
  Receive Date: 20200828
  Receipt Date: 20200925
  Transmission Date: 20201103
  Serious: Yes (Hospitalization)
  Sender: FDA-Public Use
  Company Number: FR-ACCORD-197705

PATIENT
  Age: 61 Year
  Sex: Female

DRUGS (2)
  1. OXALIPLATINE ACCORD [Suspect]
     Active Substance: OXALIPLATIN
     Indication: PANCREATIC CARCINOMA
     Dosage: STRENGTH 5 MG/ML
     Route: 041
     Dates: start: 20200728, end: 20200728
  2. IRINOTECAN ACCORD [Suspect]
     Active Substance: IRINOTECAN
     Indication: PANCREATIC CARCINOMA
     Route: 041
     Dates: start: 20200728, end: 20200728

REACTIONS (5)
  - Abdominal pain upper [Recovered/Resolved]
  - Eructation [Recovered/Resolved]
  - Dysphagia [Recovered/Resolved]
  - Off label use [Unknown]
  - Dysarthria [Recovered/Resolved]

NARRATIVE: CASE EVENT DATE: 20200728
